FAERS Safety Report 4841015-9 (Version None)
Quarter: 2005Q4

REPORT INFORMATION
  Report Type: 
  Country: None (occurrence: None)
  Receive Date: 20051130
  Receipt Date: 20050825
  Transmission Date: 20060501
  Serious: No
  Sender: FDA-Public Use
  Company Number: US-BRISTOL-MYERS SQUIBB COMPANY-13090147

PATIENT
  Age: 26 Year
  Sex: Male
  Weight: 91 kg

DRUGS (5)
  1. ABILIFY [Suspect]
     Indication: SCHIZOAFFECTIVE DISORDER
     Dates: start: 20041208
  2. ABILIFY [Suspect]
     Indication: BIPOLAR DISORDER
     Dates: start: 20041208
  3. THYROID SUPPLEMENT [Concomitant]
  4. ZYPREXA [Concomitant]
  5. EFFEXOR XR [Concomitant]

REACTIONS (2)
  - DECREASED APPETITE [None]
  - WEIGHT DECREASED [None]
